FAERS Safety Report 22953528 (Version 4)
Quarter: 2024Q2

REPORT INFORMATION
  Report Type: Report from Study
  Country: IT (occurrence: IT)
  Receive Date: 20230918
  Receipt Date: 20240528
  Transmission Date: 20240716
  Serious: Yes (Other)
  Sender: FDA-Public Use
  Company Number: IT-ROCHE-2697983

PATIENT
  Age: 65 Year
  Sex: Female

DRUGS (11)
  1. BENDAMUSTINE HYDROCHLORIDE [Suspect]
     Active Substance: BENDAMUSTINE HYDROCHLORIDE
     Indication: Product used for unknown indication
     Dosage: 1 DOSE 30/SEP/20, 2 DOSE 01/OCT/20, SOL FOR INFUS
     Route: 042
     Dates: start: 20200930
  2. OBINUTUZUMAB [Suspect]
     Active Substance: OBINUTUZUMAB
     Indication: Follicular lymphoma
     Dosage: UNK
     Route: 065
  3. OBINUTUZUMAB [Suspect]
     Active Substance: OBINUTUZUMAB
     Dosage: 1000MG (NUMBER OF CYCLES RECEIVED(AT STUDY ENTRY)
     Route: 042
     Dates: start: 20200610
  4. LASIX [Concomitant]
     Active Substance: FUROSEMIDE
     Dosage: 1 DOSAGE FORM, QD
     Route: 048
     Dates: start: 20200605, end: 20200615
  5. LASIX [Concomitant]
     Active Substance: FUROSEMIDE
     Dosage: 2 DOSAGE FORM, QD
     Route: 048
     Dates: start: 20200616, end: 20200624
  6. ENOXAPARIN SODIUM [Concomitant]
     Active Substance: ENOXAPARIN SODIUM
     Indication: Oedema peripheral
     Dosage: UNK UNK, QD (DOSE: 1 AMPULE)
     Route: 058
     Dates: start: 20200617, end: 20200903
  7. MAGNESIUM ASPARTATE\POTASSIUM ASPARTATE [Concomitant]
     Active Substance: MAGNESIUM ASPARTATE\POTASSIUM ASPARTATE
     Dosage: UNK UNK, QD (DOSE: 1 OTHER)
     Route: 048
     Dates: start: 20200624
  8. TACHIPIRINA [Concomitant]
     Active Substance: ACETAMINOPHEN
     Dosage: 1000 MILLIGRAM
     Route: 048
     Dates: start: 20200605
  9. FOLIC ACID [Concomitant]
     Active Substance: FOLIC ACID
     Dosage: UNK (START DATE:13-AUG-2021 )
     Route: 065
     Dates: start: 20210813
  10. FILGRASTIM [Concomitant]
     Active Substance: FILGRASTIM
     Dosage: UNK (START DATE:01-NOV-2020 )
     Route: 065
     Dates: start: 20201101
  11. Dobetin [Concomitant]
     Dosage: UNK (START DATE:13-AUG-2021)
     Route: 065
     Dates: start: 20210813

REACTIONS (14)
  - Pemphigus [Not Recovered/Not Resolved]
  - Transient ischaemic attack [Recovered/Resolved]
  - Neutropenia [Recovered/Resolved]
  - Spinal osteoarthritis [Recovering/Resolving]
  - Eosinophilia [Recovering/Resolving]
  - Arthralgia [Recovered/Resolved]
  - Anaemia macrocytic [Recovered/Resolved]
  - Intervertebral disc degeneration [Recovering/Resolving]
  - Rash [Recovered/Resolved]
  - White blood cell count decreased [Recovered/Resolved]
  - Pruritus [Recovered/Resolved]
  - Pain [Recovered/Resolved]
  - Anaemia [Recovered/Resolved]
  - Microcytic anaemia [Recovered/Resolved]

NARRATIVE: CASE EVENT DATE: 20200916
